FAERS Safety Report 9222508 (Version 1)
Quarter: 2013Q2

REPORT INFORMATION
  Report Type: Spontaneous
  Country: US (occurrence: US)
  Receive Date: 20130410
  Receipt Date: 20130410
  Transmission Date: 20140414
  Serious: Yes (Other)
  Sender: FDA-Public Use
  Company Number: US-VERTEX PHARMACEUTICALS INC.-2013-004590

PATIENT
  Sex: Male

DRUGS (1)
  1. INCIVEK [Suspect]
     Indication: HEPATITIS C

REACTIONS (5)
  - Staphylococcal bacteraemia [Unknown]
  - Endocarditis [Unknown]
  - Pericardial effusion [Unknown]
  - Rash generalised [Unknown]
  - Pruritus [Unknown]
